FAERS Safety Report 13693289 (Version 2)
Quarter: 2017Q2

REPORT INFORMATION
  Report Type: Report from Study
  Country: JP (occurrence: JP)
  Receive Date: 20170627
  Receipt Date: 20170629
  Transmission Date: 20170830
  Serious: Yes (Hospitalization, Other)
  Sender: FDA-Public Use
  Company Number: JP-BRISTOL-MYERS SQUIBB COMPANY-BMS-2017-049101

PATIENT
  Age: 54 Year
  Sex: Male

DRUGS (1)
  1. NIVOLUMAB [Suspect]
     Active Substance: NIVOLUMAB
     Indication: NON-SMALL CELL LUNG CANCER
     Dosage: 3 MG/KG, QD
     Route: 042
     Dates: start: 20160324, end: 20170316

REACTIONS (5)
  - Hypothyroidism [Not Recovered/Not Resolved]
  - Pneumonitis [Recovered/Resolved]
  - Decreased appetite [Unknown]
  - Gamma-glutamyltransferase increased [Not Recovered/Not Resolved]
  - Streptococcal infection [Unknown]

NARRATIVE: CASE EVENT DATE: 20160504
